FAERS Safety Report 6812319-5 (Version None)
Quarter: 2010Q3

REPORT INFORMATION
  Report Type: 
  Country: None (occurrence: None)
  Receive Date: 20100701
  Receipt Date: 20100519
  Transmission Date: 20110219
  Serious: Yes (Death, Life-Threatening, Other)
  Sender: FDA-Public Use
  Company Number: US-BAXTER-2010BH002844

PATIENT
  Age: 45 Year
  Sex: Male

DRUGS (9)
  1. HEPARIN SODIUM [Suspect]
     Indication: CATHETERISATION CARDIAC
     Route: 065
     Dates: start: 20071202, end: 20071202
  2. HEPARIN SODIUM [Suspect]
     Indication: PRODUCT USED FOR UNKNOWN INDICATION
     Route: 065
     Dates: start: 20071202, end: 20071202
  3. HEPARIN SODIUM [Suspect]
     Route: 058
     Dates: start: 20071202
  4. HEPARIN SODIUM [Suspect]
     Route: 058
     Dates: start: 20071202
  5. HEPARIN SODIUM [Suspect]
     Route: 042
     Dates: start: 20071202, end: 20071202
  6. HEPARIN SODIUM [Suspect]
     Route: 042
     Dates: start: 20071202, end: 20071202
  7. HEPARIN SODIUM 5,000 UNITS IN DEXTROSE 5% [Suspect]
     Indication: PRODUCT USED FOR UNKNOWN INDICATION
     Route: 041
     Dates: start: 20071202
  8. PEPCID [Concomitant]
     Indication: PRODUCT USED FOR UNKNOWN INDICATION
     Route: 065
  9. SUCRALFATE [Concomitant]
     Indication: PRODUCT USED FOR UNKNOWN INDICATION
     Route: 065

REACTIONS (10)
  - CARDIAC FAILURE [None]
  - CARDIO-RESPIRATORY DISTRESS [None]
  - CARDIOGENIC SHOCK [None]
  - COAGULATION TIME PROLONGED [None]
  - HAEMATURIA [None]
  - HAEMODYNAMIC INSTABILITY [None]
  - HYPOTENSION [None]
  - PULMONARY EMBOLISM [None]
  - RENAL IMPAIRMENT [None]
  - TACHYCARDIA [None]
